FAERS Safety Report 18051296 (Version 1)
Quarter: 2020Q3

REPORT INFORMATION
  Report Type: Spontaneous
  Country: GB (occurrence: GB)
  Receive Date: 20200721
  Receipt Date: 20200721
  Transmission Date: 20201103
  Serious: Yes (Other)
  Sender: FDA-Public Use
  Company Number: GB-DEXPHARM-20200581

PATIENT
  Age: 49 Year
  Sex: Male
  Weight: 97 kg

DRUGS (3)
  1. ESOMEPRAZOLE. [Concomitant]
     Active Substance: ESOMEPRAZOLE MAGNESIUM
     Dates: start: 202004
  2. OMEPRAZOLE 20 MG GASTRO?RESISTANT CAPSULES [Suspect]
     Active Substance: OMEPRAZOLE
     Indication: ABDOMINAL PAIN
     Route: 048
     Dates: start: 20200115, end: 20200215
  3. OMEPRAZOLE 40 MG GASTRO?RESISTANT CAPSULES [Suspect]
     Active Substance: OMEPRAZOLE
     Indication: ABDOMINAL PAIN
     Route: 048
     Dates: start: 20200215, end: 20200315

REACTIONS (3)
  - Middle insomnia [Recovering/Resolving]
  - Sleep deficit [Recovering/Resolving]
  - Sleep disorder [Recovering/Resolving]

NARRATIVE: CASE EVENT DATE: 20200115
